FAERS Safety Report 5736631-6 (Version None)
Quarter: 2008Q2

REPORT INFORMATION
  Report Type: 
  Country: None (occurrence: None)
  Receive Date: 20080508
  Receipt Date: 20080425
  Transmission Date: 20081010
  Serious: Yes (Other)
  Sender: FDA-Public Use
  Company Number: PI-02383

PATIENT
  Age: 46 Year
  Sex: Female
  Weight: 89 kg

DRUGS (2)
  1. CHLORAPREP ONE STEP, 1.5 ML [Suspect]
     Indication: PREOPERATIVE CARE
     Dosage: 1.5 ML, DAILY, EXPOSURE
     Dates: start: 20070501, end: 20071101
  2. SALBUTAMOL (ALBUTEROL) [Concomitant]

REACTIONS (6)
  - DISEASE RECURRENCE [None]
  - DYSPNOEA [None]
  - EYE PRURITUS [None]
  - LOWER RESPIRATORY TRACT INFECTION [None]
  - OCULAR HYPERAEMIA [None]
  - WHEEZING [None]
